FAERS Safety Report 13916992 (Version 1)
Quarter: 2017Q3

REPORT INFORMATION
  Report Type: Spontaneous
  Country: CO (occurrence: CO)
  Receive Date: 20170829
  Receipt Date: 20170829
  Transmission Date: 20171127
  Serious: Yes (Hospitalization, Other)
  Sender: FDA-Public Use
  Company Number: CO-BAYER-2017-141271

PATIENT
  Age: 56 Year
  Sex: Female

DRUGS (2)
  1. ULTRAVIST? 300 [Suspect]
     Active Substance: IOPROMIDE
     Indication: COMPUTERISED TOMOGRAM ABDOMEN
     Dosage: 100 MG/ML, ONCE
     Dates: start: 20170714, end: 20170714
  2. GASTROGRAFINA [Suspect]
     Active Substance: DIATRIZOATE MEGLUMINE\DIATRIZOATE SODIUM
     Indication: COMPUTERISED TOMOGRAM ABDOMEN
     Dosage: 12 ML, ONCE
     Dates: start: 20170714, end: 20170714

REACTIONS (4)
  - Chronic kidney disease [Recovered/Resolved]
  - Sleep apnoea syndrome [Unknown]
  - Cardio-respiratory arrest [Recovering/Resolving]
  - Medication error [Unknown]

NARRATIVE: CASE EVENT DATE: 20170714
